FAERS Safety Report 8242971-1 (Version None)
Quarter: 2012Q1

REPORT INFORMATION
  Report Type: 
  Country: None (occurrence: None)
  Receive Date: 20120329
  Receipt Date: 20120321
  Transmission Date: 20120608
  Serious: Yes (Disabling, Other)
  Sender: FDA-Public Use
  Company Number: US-PFIZER INC-2011298710

PATIENT
  Sex: Female
  Weight: 72.562 kg

DRUGS (5)
  1. KLONOPIN [Concomitant]
     Indication: ANXIETY
     Dosage: 1 MG, UNK
  2. EFFEXOR XR [Suspect]
     Indication: ANXIETY
     Dosage: 75 MG, DAILY
  3. NEXIUM [Concomitant]
     Dosage: UNK
  4. SOMA [Concomitant]
     Indication: SLEEP DISORDER
     Dosage: UNK
  5. LISINOPRIL [Concomitant]
     Indication: HYPERTENSION
     Dosage: UNK

REACTIONS (9)
  - ACTIVITIES OF DAILY LIVING IMPAIRED [None]
  - PARAESTHESIA [None]
  - SLUGGISHNESS [None]
  - DIZZINESS [None]
  - HEAD DISCOMFORT [None]
  - DISTURBANCE IN ATTENTION [None]
  - MALAISE [None]
  - MIGRAINE [None]
  - NAUSEA [None]
